FAERS Safety Report 6970511-3 (Version None)
Quarter: 2010Q3

REPORT INFORMATION
  Report Type: 
  Country: None (occurrence: None)
  Receive Date: 20100908
  Receipt Date: 20100830
  Transmission Date: 20110219
  Serious: Yes (Other)
  Sender: FDA-Public Use
  Company Number: MA-ROCHE-721549

PATIENT
  Sex: Female
  Weight: 53 kg

DRUGS (5)
  1. TOCILIZUMAB [Suspect]
     Indication: RHEUMATOID ARTHRITIS
     Dosage: DOSE: 8 MG/KG. FORM INFUSION
     Route: 042
     Dates: start: 20100514, end: 20100514
  2. TOCILIZUMAB [Suspect]
     Dosage: LAST DOSE PRIOR TO SAE: 11 JUNE 2010
     Route: 042
     Dates: start: 20100611, end: 20100611
  3. ARAVA [Concomitant]
     Dates: start: 20091201, end: 20100706
  4. ACETAMINOPHEN [Concomitant]
     Indication: PAIN
  5. MELOXICAM [Concomitant]
     Dosage: TWO DAYS

REACTIONS (1)
  - CYTOLYTIC HEPATITIS [None]
